FAERS Safety Report 20138299 (Version 3)
Quarter: 2022Q1

REPORT INFORMATION
  Report Type: Spontaneous
  Country: BR (occurrence: BR)
  Receive Date: 20211202
  Receipt Date: 20220302
  Transmission Date: 20220423
  Serious: Yes (Other)
  Sender: FDA-Public Use
  Company Number: BR-AMGEN-BRASP2021188412

PATIENT
  Age: 4 Year
  Sex: Female

DRUGS (2)
  1. BLINCYTO [Suspect]
     Active Substance: BLINATUMOMAB
     Indication: Disease recurrence
     Dosage: UNK
     Route: 065
     Dates: start: 20210812
  2. BLINCYTO [Suspect]
     Active Substance: BLINATUMOMAB
     Indication: B precursor type acute leukaemia

REACTIONS (2)
  - Disease progression [Not Recovered/Not Resolved]
  - Investigation abnormal [Unknown]
